FAERS Safety Report 4285396-6 (Version None)
Quarter: 2004Q1

REPORT INFORMATION
  Report Type: 
  Country: None (occurrence: None)
  Receive Date: 20040203
  Receipt Date: 20040203
  Transmission Date: 20041129
  Serious: Yes (Other)
  Sender: FDA-Public Use
  Company Number: None

PATIENT
  Age: 56 Year
  Sex: Male

DRUGS (8)
  1. BENICAR [Suspect]
     Indication: HYPERTENSION
     Dosage: 20 MG PO DAILY
     Route: 048
  2. CARDIZEM CD [Concomitant]
  3. PROTONIX [Concomitant]
  4. LASIX [Concomitant]
  5. PLAVIX [Concomitant]
  6. ZOCOR [Concomitant]
  7. KLONOPIN [Concomitant]
  8. DYAZIDE [Concomitant]

REACTIONS (1)
  - HYPERKALAEMIA [None]
